FAERS Safety Report 4461187-8 (Version None)
Quarter: 2004Q3

REPORT INFORMATION
  Report Type: 
  Country: None (occurrence: None)
  Receive Date: 20040923
  Receipt Date: 20040914
  Transmission Date: 20050211
  Serious: Yes (Other)
  Sender: FDA-Public Use
  Company Number: 2004233434US

PATIENT
  Sex: Female

DRUGS (4)
  1. PROVERA [Suspect]
     Indication: HORMONE REPLACEMENT THERAPY
     Dates: start: 19901101, end: 19950801
  2. PREMARIN [Suspect]
     Indication: HORMONE REPLACEMENT THERAPY
     Dates: start: 19901101, end: 19930701
  3. PREMPRO [Suspect]
     Indication: HORMONE REPLACEMENT THERAPY
     Dates: start: 19950801, end: 20020801
  4. ORTHO-EST [Suspect]
     Indication: HORMONE REPLACEMENT THERAPY
     Dates: start: 19930701, end: 19950801

REACTIONS (2)
  - BREAST CANCER [None]
  - CEREBROVASCULAR ACCIDENT [None]
